FAERS Safety Report 6371719-0 (Version None)
Quarter: 2009Q3

REPORT INFORMATION
  Report Type: 
  Country: None (occurrence: None)
  Receive Date: 20090923
  Receipt Date: 20090911
  Transmission Date: 20100115
  Serious: Yes (Congenital Anomaly, Other)
  Sender: FDA-Public Use
  Company Number: FR-PFIZER INC-2009267483

PATIENT

DRUGS (3)
  1. LYRICA [Suspect]
     Indication: INTERVERTEBRAL DISC PROTRUSION
     Dosage: 300 MG, 2X/DAY
     Route: 064
     Dates: start: 20080601, end: 20081001
  2. SKENAN [Concomitant]
     Dosage: UNK
     Route: 064
  3. ACTISKENAN [Concomitant]
     Dosage: UNK
     Route: 064

REACTIONS (3)
  - DRUG EXPOSURE DURING PREGNANCY [None]
  - INFANTILE SPASMS [None]
  - PIERRE ROBIN SYNDROME [None]
